FAERS Safety Report 26040835 (Version 1)
Quarter: 2025Q4

REPORT INFORMATION
  Report Type: Spontaneous
  Country: US (occurrence: None)
  Receive Date: 20251113
  Receipt Date: 20251113
  Transmission Date: 20260117
  Serious: No
  Sender: FDA-CTU
  Company Number: None

PATIENT
  Age: 5 Year
  Sex: Female
  Weight: 18 kg

DRUGS (2)
  1. CYCLOPHOSPHAMIDE [Suspect]
     Active Substance: CYCLOPHOSPHAMIDE
     Dates: end: 20251012
  2. THIOTEPA [Suspect]
     Active Substance: THIOTEPA
     Dates: start: 20251009

REACTIONS (8)
  - Respiratory distress [None]
  - Hypoperfusion [None]
  - Hyponatraemia [None]
  - Acidosis [None]
  - Enterococcal sepsis [None]
  - Venoocclusive liver disease [None]
  - Thrombotic microangiopathy [None]
  - General physical health deterioration [None]

NARRATIVE: CASE EVENT DATE: 20251015
